FAERS Safety Report 6409424-4 (Version None)
Quarter: 2009Q4

REPORT INFORMATION
  Report Type: 
  Country: None (occurrence: None)
  Receive Date: 20091021
  Receipt Date: 20091013
  Transmission Date: 20100525
  Serious: Yes (Death)
  Sender: FDA-Public Use
  Company Number: US-AMGEN-US353762

PATIENT
  Sex: Female
  Weight: 47.7 kg

DRUGS (2)
  1. NPLATE [Suspect]
     Indication: IDIOPATHIC THROMBOCYTOPENIC PURPURA
     Route: 058
     Dates: start: 20090414, end: 20090428
  2. CORTICOSTEROIDS [Concomitant]
     Dates: start: 20080101

REACTIONS (2)
  - SEPTIC SHOCK [None]
  - UROSEPSIS [None]
